FAERS Safety Report 7392570-9 (Version None)
Quarter: 2011Q2

REPORT INFORMATION
  Report Type: 
  Country: None (occurrence: None)
  Receive Date: 20110404
  Receipt Date: 20110328
  Transmission Date: 20111010
  Serious: Yes (Hospitalization)
  Sender: FDA-Public Use
  Company Number: BR-GENZYME-FABR-1001866

PATIENT
  Sex: Male

DRUGS (1)
  1. FABRAZYME [Suspect]
     Indication: FABRY'S DISEASE
     Dosage: 35 MG, UNK
     Route: 042
     Dates: start: 20100805

REACTIONS (6)
  - PAIN [None]
  - DECREASED APPETITE [None]
  - TONSILLITIS BACTERIAL [None]
  - NAUSEA [None]
  - APATHY [None]
  - HEADACHE [None]
